FAERS Safety Report 23361045 (Version 1)
Quarter: 2024Q1

REPORT INFORMATION
  Report Type: Spontaneous
  Country: DE (occurrence: DE)
  Receive Date: 20240103
  Receipt Date: 20240103
  Transmission Date: 20240410
  Serious: Yes (Other)
  Sender: FDA-Public Use
  Company Number: DE-AUROBINDO-AUR-APL-2023-054776

PATIENT
  Age: 43 Year
  Sex: Male

DRUGS (24)
  1. AMITRIPTYLINE [Suspect]
     Active Substance: AMITRIPTYLINE
     Indication: Product used for unknown indication
     Dosage: 1 DF, QD
     Route: 048
     Dates: start: 20211012
  2. AMITRIPTYLINE HYDROCHLORIDE [Suspect]
     Active Substance: AMITRIPTYLINE HYDROCHLORIDE
     Indication: Product used for unknown indication
     Dosage: 1 DF, QD
     Route: 065
     Dates: start: 20220714
  3. FENTANYL TRANSDERMAL SYSTEM [Suspect]
     Active Substance: FENTANYL
     Indication: Polyneuropathy
     Dosage: UNK
     Route: 062
     Dates: start: 202304
  4. METOPROLOL SUCCINATE [Concomitant]
     Active Substance: METOPROLOL SUCCINATE
     Indication: Product used for unknown indication
     Dosage: UNK (2 IN THE MORNING AND 1 IN THE EVENING)
     Route: 048
     Dates: start: 20220719
  5. CHOLECALCIFEROL [Concomitant]
     Active Substance: CHOLECALCIFEROL
     Indication: Product used for unknown indication
     Dosage: 50 MG ONCE A DAY AT LUNCH TIME
     Route: 048
     Dates: start: 20230714
  6. DIAZEPAM [Concomitant]
     Active Substance: DIAZEPAM
     Indication: Epilepsy
     Dosage: 1 DOSAGE FORM, ONCE A DAY
     Route: 054
     Dates: start: 20191105
  7. DULOXETINE [Concomitant]
     Active Substance: DULOXETINE
     Indication: Product used for unknown indication
     Dosage: 1 DOSAGE FORM, ONCE A DAY, MORNING
     Route: 048
     Dates: start: 20201210
  8. FERROUS GLUCONATE [Concomitant]
     Active Substance: FERROUS GLUCONATE
     Indication: Product used for unknown indication
     Dosage: 50 MILLIGRAM, ONCE A DAY AT LUNCH TIME
     Route: 048
     Dates: start: 20230714
  9. FREKA-CLYSS [Concomitant]
     Indication: Constipation
     Dosage: 1 DOSAGE FORM, ONCE A DAY
     Route: 054
     Dates: start: 20191105
  10. GABAPENTIN [Concomitant]
     Active Substance: GABAPENTIN
     Indication: Product used for unknown indication
     Dosage: UNK (1 IN THE MORNING AND 2 IN THE EVENING)
     Route: 048
     Dates: start: 20230719
  11. HYDROCORTISONE [Concomitant]
     Active Substance: HYDROCORTISONE
     Indication: Prescription drug used without a prescription
     Dosage: 1 DF, QD
     Route: 048
     Dates: start: 20220722
  12. HYDROCORTISONE ACETATE [Concomitant]
     Active Substance: HYDROCORTISONE ACETATE
     Indication: Product used for unknown indication
     Dosage: UNK (1.5 IN THE MORNING AND 0.5 IN THE EVENING)
     Route: 048
     Dates: start: 20230714
  13. HYDROMORPHONE HYDROCHLORIDE [Concomitant]
     Active Substance: HYDROMORPHONE HYDROCHLORIDE
     Indication: Pain
     Dosage: 1 DOSAGE FORM, ONCE A DAY
     Route: 048
     Dates: start: 20221010
  14. LACTULOSE [Concomitant]
     Active Substance: LACTULOSE
     Indication: Product used for unknown indication
     Dosage: UNK (10ML IN MORNING AND 5ML AT LUNCH TIME
     Route: 048
     Dates: start: 20220719
  15. LAMOTRIGINE [Concomitant]
     Active Substance: LAMOTRIGINE
     Indication: Product used for unknown indication
     Dosage: UNK (3 IN THE MORNING AND 3 INB THE EVENING)
     Route: 048
     Dates: start: 20200701
  16. MCP [Concomitant]
     Active Substance: METOCLOPRAMIDE HYDROCHLORIDE
     Indication: Nausea
     Dosage: 1 DOSAGE FORM, ONCE A DAY
     Route: 048
     Dates: start: 20220128
  17. METFORMIN AL [Concomitant]
     Indication: Product used for unknown indication
     Dosage: UNK (2 IN THE MORNING AND 2 IN THE EVENING)
     Route: 048
     Dates: start: 20230719
  18. NALOXEGOL OXALATE [Concomitant]
     Active Substance: NALOXEGOL OXALATE
     Indication: Product used for unknown indication
     Dosage: 2 DOSAGE FORM, ONCE A DAY
     Route: 048
     Dates: start: 20230714
  19. PANTOPRAZOLE [Concomitant]
     Active Substance: PANTOPRAZOLE
     Indication: Product used for unknown indication
     Dosage: 1 DOSAGE FORM, ONCE A DAY
     Route: 048
     Dates: start: 20191105
  20. ACETAMINOPHEN [Concomitant]
     Active Substance: ACETAMINOPHEN
     Indication: Pain
     Dosage: 1 DOSAGE FORM, ONCE A DAY
     Route: 048
     Dates: start: 20221119
  21. ACETAMINOPHEN [Concomitant]
     Active Substance: ACETAMINOPHEN
     Indication: Pyrexia
  22. Sab simplex [Concomitant]
     Indication: Product used for unknown indication
     Dosage: 30 UNK, 3 TIMES A DAY
     Route: 048
     Dates: start: 20191105
  23. CHOLECALCIFEROL [Concomitant]
     Active Substance: CHOLECALCIFEROL
     Indication: Product used for unknown indication
     Dosage: 1 DOSAGE FORM WEEKLY
     Route: 048
     Dates: start: 20230718
  24. CHOLECALCIFEROL [Concomitant]
     Active Substance: CHOLECALCIFEROL
     Dosage: FROM SEPTEMBER1 CAPSULE PER WEEK (ON MONDAYS IN EVENING)
     Route: 048

REACTIONS (2)
  - Seizure [Recovering/Resolving]
  - Hyperhidrosis [Not Recovered/Not Resolved]

NARRATIVE: CASE EVENT DATE: 20230501
